FAERS Safety Report 9714942 (Version 1)
Quarter: 2013Q4

REPORT INFORMATION
  Report Type: Spontaneous
  Country: US (occurrence: US)
  Receive Date: 20131126
  Receipt Date: 20131126
  Transmission Date: 20140711
  Serious: No
  Sender: FDA-Public Use
  Company Number: US-NOVEN-13US007416

PATIENT
  Sex: Female

DRUGS (1)
  1. MINIVELLE [Suspect]
     Indication: PRODUCT USED FOR UNKNOWN INDICATION
     Dosage: 2 X 0.075 MG, UNK
     Route: 062
     Dates: start: 2013

REACTIONS (3)
  - Wrong technique in drug usage process [Recovered/Resolved]
  - Drug dose omission [Not Recovered/Not Resolved]
  - No adverse event [None]
